FAERS Safety Report 21198246 (Version 11)
Quarter: 2025Q1

REPORT INFORMATION
  Report Type: Report from Study
  Country: US (occurrence: US)
  Receive Date: 20220811
  Receipt Date: 20250320
  Transmission Date: 20250408
  Serious: No
  Sender: TAKEDA
  Company Number: US-TAKEDA-US202024096

PATIENT
  Age: 65 Year
  Sex: Female
  Weight: 75 kg

DRUGS (25)
  1. HUMAN IMMUNOGLOBULIN G [Suspect]
     Active Substance: HUMAN IMMUNOGLOBULIN G
     Indication: Primary immunodeficiency syndrome
     Dosage: 20 GRAM, 1/WEEK
     Dates: start: 20170116
  2. HUMAN IMMUNOGLOBULIN G [Suspect]
     Active Substance: HUMAN IMMUNOGLOBULIN G
     Indication: Combined immunodeficiency
  3. HUMAN IMMUNOGLOBULIN G [Suspect]
     Active Substance: HUMAN IMMUNOGLOBULIN G
     Indication: Immunodeficiency common variable
  4. ACETAMINOPHEN [Concomitant]
     Active Substance: ACETAMINOPHEN
  5. DIPHENHYDRAMINE [Concomitant]
     Active Substance: DIPHENHYDRAMINE
  6. EPINEPHRINE [Concomitant]
     Active Substance: EPINEPHRINE
  7. BUPROPION [Concomitant]
     Active Substance: BUPROPION
  8. CYCLOBENZAPRINE [Concomitant]
     Active Substance: CYCLOBENZAPRINE
  9. PERCOCET [Concomitant]
     Active Substance: ACETAMINOPHEN\OXYCODONE HYDROCHLORIDE
  10. AIMOVIG [Concomitant]
     Active Substance: ERENUMAB-AOOE
  11. LEXAPRO [Concomitant]
     Active Substance: ESCITALOPRAM OXALATE
  12. BACTRIM [Concomitant]
     Active Substance: SULFAMETHOXAZOLE\TRIMETHOPRIM
  13. FLUCONAZOLE [Concomitant]
     Active Substance: FLUCONAZOLE
  14. ADVAIR HFA [Concomitant]
     Active Substance: FLUTICASONE PROPIONATE\SALMETEROL XINAFOATE
  15. RHINOCORT [Concomitant]
     Active Substance: BUDESONIDE
  16. KLONOPIN [Concomitant]
     Active Substance: CLONAZEPAM
  17. PROCHLORPERAZINE [Concomitant]
     Active Substance: PROCHLORPERAZINE
  18. CAMBIA [Concomitant]
     Active Substance: DICLOFENAC POTASSIUM
  19. ZYRTEC [Concomitant]
     Active Substance: CETIRIZINE HYDROCHLORIDE
  20. ALBUTEROL\IPRATROPIUM [Concomitant]
     Active Substance: ALBUTEROL\IPRATROPIUM
  21. OXYGEN [Concomitant]
     Active Substance: OXYGEN
  22. NEXIUM [Concomitant]
     Active Substance: ESOMEPRAZOLE MAGNESIUM
  23. Calcium + iron [Concomitant]
  24. METFORMIN [Concomitant]
     Active Substance: METFORMIN HYDROCHLORIDE
  25. ALBUTEROL [Concomitant]
     Active Substance: ALBUTEROL

REACTIONS (16)
  - Nasopharyngitis [Unknown]
  - Intervertebral disc disorder [Unknown]
  - Body height decreased [Unknown]
  - Fall [Unknown]
  - Back injury [Unknown]
  - Urinary tract infection [Unknown]
  - Brain fog [Unknown]
  - Bronchitis [Unknown]
  - Sinusitis [Unknown]
  - Abdominal distension [Unknown]
  - Pain [Unknown]
  - Infusion site swelling [Unknown]
  - Intervertebral disc protrusion [Unknown]
  - Ankle fracture [Unknown]
  - Back pain [Recovering/Resolving]
  - Fatigue [Unknown]

NARRATIVE: CASE EVENT DATE: 20250318
